FAERS Safety Report 5482557-5 (Version None)
Quarter: 2007Q4

REPORT INFORMATION
  Report Type: 
  Country: None (occurrence: None)
  Receive Date: 20071011
  Receipt Date: 20070813
  Transmission Date: 20080405
  Serious: No
  Sender: FDA-Public Use
  Company Number: A0662200A

PATIENT
  Age: 52 Year
  Sex: Female
  Weight: 54.5 kg

DRUGS (8)
  1. TYKERB [Suspect]
     Indication: BREAST CANCER
     Dosage: 250MG FIVE TIMES PER DAY
     Route: 048
     Dates: start: 20070501
  2. ZOMETA [Concomitant]
  3. UNKNOWN MEDICATION [Concomitant]
  4. ADVAIR DISKUS 100/50 [Concomitant]
  5. COUMADIN [Concomitant]
  6. THEO-24 [Concomitant]
  7. CALCIUM [Concomitant]
  8. VITAMIN D [Concomitant]

REACTIONS (5)
  - CHEILITIS [None]
  - FOLLICULITIS [None]
  - PRURITUS [None]
  - RASH PAPULAR [None]
  - SKIN ULCER [None]
